FAERS Safety Report 8764352 (Version 1)
Quarter: 2012Q4

REPORT INFORMATION
  Report Type: 
  Country: US (occurrence: US)
  Receive Date: 20120829
  Receipt Date: 20120829
  Transmission Date: 20130627
  Serious: Yes (Hospitalization)
  Sender: FDA-Public Use
  Company Number: PHEH2012US015670

PATIENT
  Age: 62 Year
  Sex: Female
  Weight: 80.73 kg

DRUGS (1)
  1. GILENYA [Suspect]
     Indication: MULTIPLE SCLEROSIS
     Dosage: 0.5 mg, daily
     Route: 048
     Dates: start: 20120806

REACTIONS (3)
  - Heart rate decreased [Recovered/Resolved]
  - Abnormal dreams [Recovering/Resolving]
  - Fatigue [Recovering/Resolving]
